FAERS Safety Report 4533212-7 (Version None)
Quarter: 2005Q1

REPORT INFORMATION
  Report Type: 
  Country: None (occurrence: None)
  Receive Date: 20041206
  Receipt Date: 20041025
  Transmission Date: 20050727
  Serious: No
  Sender: FDA-Public Use
  Company Number: USA041082186

PATIENT
  Age: 18 Year
  Sex: Female

DRUGS (6)
  1. CYMBALTA [Suspect]
     Indication: DEPRESSION
     Dosage: 30 MG/1 DAY
     Dates: start: 20041018
  2. DEPO-PROVERA SUSPENSION/INJ [Concomitant]
  3. TRILAFON (PERPHENAZINE ENANTATE) [Concomitant]
  4. LITHIUM [Concomitant]
  5. LEXAPRO [Concomitant]
  6. TRAZODONE HCL [Concomitant]

REACTIONS (1)
  - TREMOR [None]
